FAERS Safety Report 25653596 (Version 1)
Quarter: 2025Q3

REPORT INFORMATION
  Report Type: Report from Study
  Country: US (occurrence: US)
  Receive Date: 20250807
  Receipt Date: 20250807
  Transmission Date: 20251021
  Serious: Yes (Other)
  Sender: NOVARTIS
  Company Number: US-002147023-NVSC2025US124042

PATIENT
  Sex: Male

DRUGS (2)
  1. SCEMBLIX [Suspect]
     Active Substance: ASCIMINIB HYDROCHLORIDE
     Indication: Product used for unknown indication
     Route: 065
  2. SCEMBLIX [Suspect]
     Active Substance: ASCIMINIB HYDROCHLORIDE
     Route: 065

REACTIONS (1)
  - Transient ischaemic attack [Unknown]
